FAERS Safety Report 7772589-6 (Version None)
Quarter: 2011Q3

REPORT INFORMATION
  Report Type: 
  Country: None (occurrence: None)
  Receive Date: 20110922
  Receipt Date: 20110718
  Transmission Date: 20111222
  Serious: No
  Sender: FDA-Public Use
  Company Number: US-ASTRAZENECA-2011SE42904

PATIENT
  Age: 31 Year
  Sex: Female
  Weight: 90.7 kg

DRUGS (6)
  1. SEROQUEL XR [Suspect]
     Indication: BIPOLAR I DISORDER
     Route: 048
  2. CALCIUM CARBONATE [Concomitant]
  3. VITAMIN B-12 [Concomitant]
     Indication: MALABSORPTION
  4. MAGNESIUM [Concomitant]
  5. VIT D [Concomitant]
     Indication: MALABSORPTION
  6. LOVAZA [Concomitant]

REACTIONS (5)
  - MALAISE [None]
  - CRYING [None]
  - DRUG DOSE OMISSION [None]
  - IRRITABILITY [None]
  - ANGER [None]
